FAERS Safety Report 21628812 (Version 1)
Quarter: 2022Q4

REPORT INFORMATION
  Report Type: Spontaneous
  Country: US (occurrence: US)
  Receive Date: 20221122
  Receipt Date: 20221122
  Transmission Date: 20230112
  Serious: No
  Sender: FDA-Public Use
  Company Number: US-GE HEALTHCARE-2022CSU007636

PATIENT
  Age: 4 Year
  Sex: Male

DRUGS (2)
  1. ADREVIEW [Suspect]
     Active Substance: IOBENGUANE I-123
     Indication: Radioisotope scan
     Dosage: UNK UNK, SINGLE
     Route: 042
     Dates: start: 20221018, end: 20221018
  2. ADREVIEW [Suspect]
     Active Substance: IOBENGUANE I-123
     Indication: Neuroblastoma

REACTIONS (1)
  - Injection site extravasation [Unknown]

NARRATIVE: CASE EVENT DATE: 20221018
